FAERS Safety Report 23409708 (Version 2)
Quarter: 2024Q1

REPORT INFORMATION
  Report Type: Spontaneous
  Country: CN (occurrence: CN)
  Receive Date: 20240117
  Receipt Date: 20240125
  Transmission Date: 20240410
  Serious: Yes (Hospitalization)
  Sender: FDA-Public Use
  Company Number: CN-002147023-NVSC2024CN008562

PATIENT
  Age: 71 Year
  Sex: Male
  Weight: 63 kg

DRUGS (2)
  1. GLYCOPYRRONIUM\INDACATEROL [Suspect]
     Active Substance: GLYCOPYRRONIUM\INDACATEROL
     Indication: Chronic obstructive pulmonary disease
     Dosage: 1 DOSAGE FORM, QD (1 PILL)
     Dates: start: 20240110, end: 20240110
  2. MOXIFLOXACIN HYDROCHLORIDE [Suspect]
     Active Substance: MOXIFLOXACIN HYDROCHLORIDE\MOXIFLOXACIN HYDROCHLORIDE MONOHYDRATE
     Indication: Upper respiratory tract infection
     Dosage: 0.4 G, QD
     Route: 048
     Dates: start: 20240110, end: 20240110

REACTIONS (9)
  - Dizziness [Recovering/Resolving]
  - Dry skin [Recovering/Resolving]
  - Hyperthermia [Recovering/Resolving]
  - Rash [Recovered/Resolved]
  - Pruritus [Recovering/Resolving]
  - Flushing [Recovering/Resolving]
  - Discomfort [Recovering/Resolving]
  - Vision blurred [Recovering/Resolving]
  - Blood pressure increased [Unknown]

NARRATIVE: CASE EVENT DATE: 20240110
